FAERS Safety Report 11718943 (Version 5)
Quarter: 2016Q2

REPORT INFORMATION
  Report Type: Report from Study
  Country: DE (occurrence: DE)
  Receive Date: 20151109
  Receipt Date: 20160509
  Transmission Date: 20160815
  Serious: Yes (Other)
  Sender: FDA-Public Use
  Company Number: DE-GILEAD-2015-0175758

PATIENT
  Age: 37 Year
  Sex: Female
  Weight: 57 kg

DRUGS (2)
  1. SOFOSBUVIR [Suspect]
     Active Substance: SOFOSBUVIR
     Indication: CHRONIC HEPATITIS C
     Dosage: 400 MG, QD
     Route: 048
     Dates: start: 20150904, end: 20160212
  2. REBETOL [Suspect]
     Active Substance: RIBAVIRIN
     Indication: CHRONIC HEPATITIS C
     Dosage: 800 MG, QD
     Route: 048
     Dates: start: 20150904, end: 20160212

REACTIONS (16)
  - Depression [Unknown]
  - Headache [Unknown]
  - Myalgia [Unknown]
  - Insomnia [Unknown]
  - Depressed mood [Unknown]
  - Pyrexia [Unknown]
  - Irritability [Unknown]
  - Psychotic disorder [Unknown]
  - Disturbance in attention [Unknown]
  - Arthralgia [Unknown]
  - Weight decreased [Unknown]
  - Restlessness [Unknown]
  - Fatigue [Unknown]
  - Nausea [Unknown]
  - Skin disorder [Unknown]
  - Alopecia [Unknown]
